FAERS Safety Report 22352657 (Version 1)
Quarter: 2023Q2

REPORT INFORMATION
  Report Type: Report from Study
  Country: DE (occurrence: DE)
  Receive Date: 20230523
  Receipt Date: 20230523
  Transmission Date: 20230721
  Serious: Yes (Other)
  Sender: FDA-Public Use
  Company Number: DE-ABBVIE-4757628

PATIENT
  Sex: Male

DRUGS (2)
  1. CARBIDOPA\LEVODOPA [Suspect]
     Active Substance: CARBIDOPA\LEVODOPA
     Indication: Parkinson^s disease
     Dosage: MD: 9.0ML; CRD: 1,.9ML/H; ED: 1.2ML
     Route: 050
     Dates: start: 20211129
  2. CARBIDOPA\LEVODOPA [Suspect]
     Active Substance: CARBIDOPA\LEVODOPA

REACTIONS (3)
  - Unresponsive to stimuli [Not Recovered/Not Resolved]
  - Mobility decreased [Not Recovered/Not Resolved]
  - On and off phenomenon [Recovered/Resolved]
